FAERS Safety Report 10609631 (Version 2)
Quarter: 2015Q1

REPORT INFORMATION
  Report Type: Spontaneous
  Country: US (occurrence: US)
  Receive Date: 20141126
  Receipt Date: 20150126
  Transmission Date: 20150720
  Serious: Yes (Hospitalization, Other)
  Sender: FDA-Public Use
  Company Number: US-ELI_LILLY_AND_COMPANY-US201411006092

PATIENT
  Age: 18 Year
  Sex: Female

DRUGS (1)
  1. PROZAC [Suspect]
     Active Substance: FLUOXETINE HYDROCHLORIDE
     Indication: PRODUCT USED FOR UNKNOWN INDICATION
     Route: 065

REACTIONS (8)
  - Premature labour [Recovered/Resolved]
  - Pneumonia [Unknown]
  - Exposure during pregnancy [Recovered/Resolved]
  - Pleural effusion [Unknown]
  - Pulmonary haemorrhage [Unknown]
  - Premature labour [Recovered/Resolved]
  - Atelectasis [Unknown]
  - Pulmonary oedema [Unknown]

NARRATIVE: CASE EVENT DATE: 2003
